FAERS Safety Report 7718218-9 (Version None)
Quarter: 2011Q3

REPORT INFORMATION
  Report Type: 
  Country: None (occurrence: None)
  Receive Date: 20110830
  Receipt Date: 20110819
  Transmission Date: 20111222
  Serious: Yes (Hospitalization)
  Sender: FDA-Public Use
  Company Number: PHEH2011US02133

PATIENT
  Sex: Female
  Weight: 28.118 kg

DRUGS (16)
  1. FISH OIL [Concomitant]
  2. VITAMIN D [Concomitant]
  3. ZOLOFT [Concomitant]
     Dosage: 25 MG, UNK
  4. DITROPAN [Concomitant]
     Dosage: 5 MG, UNK
  5. EXJADE [Suspect]
     Dosage: 500 MG, BID
     Route: 048
  6. VITAMIN E [Concomitant]
     Dosage: 1000 U, UNK
  7. EXJADE [Suspect]
     Dosage: 500 MG, BID
     Route: 048
     Dates: start: 20110730
  8. CALCIUM CARBONATE [Concomitant]
  9. LISINOPRIL [Concomitant]
     Dosage: 5 MG, UNK
  10. VITAMIN B6 [Concomitant]
     Dosage: 250 MG, UNK
  11. DETROL [Concomitant]
     Dosage: 1 MG, UNK
  12. ASPIRIN [Concomitant]
  13. AMBIEN [Concomitant]
     Dosage: 5 MG, UNK
  14. NEXIUM [Concomitant]
     Dosage: 20 MG, UNK
  15. VITAMIN-MINERAL COMPOUND TAB [Concomitant]
  16. VITAMIN B-12 [Concomitant]

REACTIONS (1)
  - PELVIC FRACTURE [None]
